FAERS Safety Report 17133450 (Version 1)
Quarter: 2019Q4

REPORT INFORMATION
  Report Type: Spontaneous
  Country: US (occurrence: US)
  Receive Date: 20191210
  Receipt Date: 20191210
  Transmission Date: 20200122
  Serious: No
  Sender: FDA-Public Use
  Company Number: US-UCBSA-2016035154

PATIENT
  Age: 29 Year
  Sex: Female

DRUGS (1)
  1. CIMZIA [Suspect]
     Active Substance: CERTOLIZUMAB PEGOL
     Indication: PRODUCT USED FOR UNKNOWN INDICATION
     Dosage: 400 MG, EV 2 WEEKS(QOW), LOADING DOSE
     Route: 058
     Dates: start: 20160902

REACTIONS (3)
  - Eye swelling [Unknown]
  - Swelling face [Unknown]
  - Migraine [Unknown]

NARRATIVE: CASE EVENT DATE: 20160909
